FAERS Safety Report 5985288-8 (Version None)
Quarter: 2008Q4

REPORT INFORMATION
  Report Type: 
  Country: None (occurrence: None)
  Receive Date: 20081203
  Receipt Date: 20081117
  Transmission Date: 20090506
  Serious: Yes (Other)
  Sender: FDA-Public Use
  Company Number: DSA_32766_2008

PATIENT
  Age: 61 Year
  Sex: Male
  Weight: 89 kg

DRUGS (6)
  1. DILTIAZEM HYDROCHLORIDE [Suspect]
     Indication: MYOCARDIAL ISCHAEMIA
     Dosage: (ORAL)
     Route: 048
  2. CILOSTAZOL [Suspect]
     Indication: PERIPHERAL VASCULAR DISORDER
     Dosage: (100 MG BID ORAL)
     Route: 048
     Dates: start: 20080903, end: 20080905
  3. ASPIRIN [Concomitant]
  4. ATORVASTATIN [Concomitant]
  5. EZETIMIBE [Concomitant]
  6. LISINOPRIL [Concomitant]

REACTIONS (3)
  - DRUG INTERACTION [None]
  - HYPOTENSION [None]
  - TACHYCARDIA [None]
